FAERS Safety Report 8777650 (Version 1)
Quarter: 2012Q4

REPORT INFORMATION
  Report Type: 
  Country: GB (occurrence: GB)
  Receive Date: 20120904
  Receipt Date: 20120904
  Transmission Date: 20130627
  Serious: Yes (Other)
  Sender: FDA-Public Use
  Company Number: GB-ELI_LILLY_AND_COMPANY-GB201208009489

PATIENT
  Age: 26 Year
  Sex: Female
  Weight: 57 kg

DRUGS (2)
  1. CYMBALTA [Suspect]
     Dosage: UNK, unknown
     Route: 048
     Dates: start: 20120727, end: 20120815
  2. CITALOPRAM [Concomitant]
     Dosage: UNK, unknown

REACTIONS (1)
  - Amnesia [Recovered/Resolved]
